FAERS Safety Report 17974421 (Version 1)
Quarter: 2020Q3

REPORT INFORMATION
  Report Type: Spontaneous
  Country: JP (occurrence: JP)
  Receive Date: 20200702
  Receipt Date: 20200702
  Transmission Date: 20201103
  Serious: Yes (Hospitalization)
  Sender: FDA-Public Use
  Company Number: JP-TEVA-2020-JP-004226J

PATIENT
  Age: 64 Year
  Sex: Male

DRUGS (1)
  1. CLINDAMYCIN INJECTION 600MG ^TAIYO^ [Suspect]
     Active Substance: CLINDAMYCIN HYDROCHLORIDE
     Indication: PRODUCT USED FOR UNKNOWN INDICATION
     Route: 065
     Dates: start: 201906, end: 201906

REACTIONS (1)
  - Drug eruption [Unknown]
